FAERS Safety Report 13628432 (Version 1)
Quarter: 2017Q2

REPORT INFORMATION
  Report Type: Report from Study
  Country: HN (occurrence: HN)
  Receive Date: 20170608
  Receipt Date: 20170608
  Transmission Date: 20170830
  Serious: Yes (Death, Hospitalization)
  Sender: FDA-Public Use
  Company Number: HN-ELI_LILLY_AND_COMPANY-HN201706002930

PATIENT
  Age: 57 Year
  Sex: Male

DRUGS (2)
  1. CAPECITABINE. [Concomitant]
     Active Substance: CAPECITABINE
     Indication: COLORECTAL CANCER
     Dosage: UNK
  2. CETUXIMAB. [Suspect]
     Active Substance: CETUXIMAB
     Indication: COLORECTAL CANCER
     Dosage: 400 MG, WEEKLY (1/W)
     Route: 042
     Dates: start: 2015, end: 20170405

REACTIONS (14)
  - Neurological symptom [Unknown]
  - Oedema peripheral [Unknown]
  - Metastases to liver [Unknown]
  - Dysphagia [Unknown]
  - Dehydration [Unknown]
  - Off label use [Unknown]
  - Anaemia [Unknown]
  - Septic encephalopathy [Unknown]
  - Decreased appetite [Unknown]
  - Multiple organ dysfunction syndrome [Fatal]
  - Asthenia [Unknown]
  - Lethargy [Unknown]
  - Hypertension [Unknown]
  - Acute kidney injury [Unknown]

NARRATIVE: CASE EVENT DATE: 20170528
